FAERS Safety Report 15583814 (Version 1)
Quarter: 2018Q4

REPORT INFORMATION
  Report Type: Spontaneous
  Country: US (occurrence: US)
  Receive Date: 20181031
  Receipt Date: 20181031
  Transmission Date: 20190205
  Serious: Yes (Death, Hospitalization)
  Sender: FDA-Public Use
  Company Number: None

PATIENT
  Age: 71 Year
  Sex: Male
  Weight: 80.74 kg

DRUGS (1)
  1. KYMRIAH [Suspect]
     Active Substance: TISAGENLECLEUCEL
     Dosage: ?          OTHER DOSE:2.8 X 10E8 T-CELLS;OTHER FREQUENCY:ONE TIME DOSE;?
     Route: 041
     Dates: start: 20180822

REACTIONS (17)
  - Disease progression [None]
  - Ascites [None]
  - Fungal infection [None]
  - Multiple sclerosis [None]
  - Neurotoxicity [None]
  - Lymphoma [None]
  - Negativism [None]
  - Tachycardia [None]
  - Hypotension [None]
  - Mucormycosis [None]
  - Human herpes virus 6 serology positive [None]
  - Hypernatraemia [None]
  - Blood culture positive [None]
  - Intensive care unit delirium [None]
  - Pyrexia [None]
  - Cardiorenal syndrome [None]
  - Liver function test increased [None]

NARRATIVE: CASE EVENT DATE: 20180823
